FAERS Safety Report 7798605-3 (Version None)
Quarter: 2011Q4

REPORT INFORMATION
  Report Type: 
  Country: None (occurrence: None)
  Receive Date: 20111005
  Receipt Date: 20110926
  Transmission Date: 20120403
  Serious: Yes (Hospitalization, Other)
  Sender: FDA-Public Use
  Company Number: US-ASTRAZENECA-2011SE30806

PATIENT
  Age: 81 Year
  Sex: Female

DRUGS (1)
  1. ARIMIDEX [Suspect]
     Route: 048

REACTIONS (13)
  - BONE NEOPLASM MALIGNANT [None]
  - MENTAL IMPAIRMENT [None]
  - DECREASED APPETITE [None]
  - LIMB INJURY [None]
  - LOSS OF CONSCIOUSNESS [None]
  - JOINT INJURY [None]
  - CONFUSIONAL STATE [None]
  - HEAD INJURY [None]
  - BACK PAIN [None]
  - AMNESIA [None]
  - FALL [None]
  - ROTATOR CUFF SYNDROME [None]
  - WEIGHT DECREASED [None]
